FAERS Safety Report 24643087 (Version 1)
Quarter: 2024Q4

REPORT INFORMATION
  Report Type: Spontaneous
  Country: US (occurrence: US)
  Receive Date: 20241120
  Receipt Date: 20241120
  Transmission Date: 20250115
  Serious: Yes (Hospitalization)
  Sender: BRISTOL-MYERS SQUIBB COMPANY
  Company Number: US-BRISTOL-MYERS SQUIBB COMPANY-2024-180175

PATIENT
  Age: 86 Year
  Sex: Male
  Weight: 102.06 kg

DRUGS (1)
  1. REVLIMID [Suspect]
     Active Substance: LENALIDOMIDE
     Indication: Diffuse large B-cell lymphoma
     Dosage: FREQUENCY: ONCE DAILY FOR 21 DAYS ON THEN 7 DAYS OFF EACH 28 DAY CYCLE
     Route: 048

REACTIONS (2)
  - Fall [Recovering/Resolving]
  - Contusion [Recovering/Resolving]
